FAERS Safety Report 20473134 (Version 1)
Quarter: 2022Q1

REPORT INFORMATION
  Report Type: Other
  Country: CN (occurrence: None)
  Receive Date: 20220215
  Receipt Date: 20220215
  Transmission Date: 20220423
  Serious: Yes (Other)
  Sender: FDA-Public Use
  Company Number: CN-ROCHE-3018236

PATIENT

DRUGS (6)
  1. CAPECITABINE [Suspect]
     Active Substance: CAPECITABINE
     Indication: Colorectal cancer metastatic
     Dosage: ON A 21 DAY CYCLE
     Route: 048
  2. APATINIB [Suspect]
     Active Substance: APATINIB
     Indication: Colorectal cancer metastatic
     Route: 048
  3. GIMERACIL\OTERACIL\TEGAFUR [Suspect]
     Active Substance: GIMERACIL\OTERACIL\TEGAFUR
     Indication: Colorectal cancer metastatic
     Dosage: FOLLOWED BY 7 DAYS OFF IN A 21 DAY CYCLE
     Route: 048
  4. GIMERACIL\OTERACIL\TEGAFUR [Suspect]
     Active Substance: GIMERACIL\OTERACIL\TEGAFUR
     Dosage: FOLLOWED BY 7 DAYS OFF IN A 21-DAY CYCLE
     Route: 048
  5. GIMERACIL\OTERACIL\TEGAFUR [Suspect]
     Active Substance: GIMERACIL\OTERACIL\TEGAFUR
     Dosage: FOLLOWED BY 7 DAYS OFF IN A 21-DAY CYCLE
     Route: 048
  6. FLUOROURACIL [Suspect]
     Active Substance: FLUOROURACIL
     Indication: Colorectal cancer metastatic
     Dosage: FOLLOWED BY A 46 HOUR CONTINUOUS INFUSION OF 2,400-3,000 MG/M2 IN A 14-DAY CYCLE
     Route: 042

REACTIONS (3)
  - Palmar-plantar erythrodysaesthesia syndrome [Unknown]
  - Proteinuria [Unknown]
  - Hypertension [Unknown]
